FAERS Safety Report 7314592 (Version 6)
Quarter: 2014Q2

REPORT INFORMATION
  Report Type: Spontaneous
  Country: US (occurrence: US)
  Receive Date: 20100311
  Receipt Date: 20140506
  Transmission Date: 20141212
  Serious: Yes (Hospitalization, Other)
  Sender: FDA-Public Use
  Company Number: US-BAYER-201015977NA

PATIENT
  Age: 39 Year
  Sex: Female
  Weight: 68.93 kg

DRUGS (6)
  1. YAZ [Suspect]
     Indication: CONTRACEPTION
     Route: 048
     Dates: start: 2000, end: 20080615
  2. YASMIN [Suspect]
     Indication: CONTRACEPTION
     Route: 048
     Dates: start: 2000, end: 20080615
  3. UNKNOWN DRUG [Concomitant]
  4. IBUPROFEN [Concomitant]
  5. LEXAPRO [Concomitant]
  6. IMITREX [Concomitant]

REACTIONS (2)
  - Cholecystectomy [Unknown]
  - Cholelithiasis [None]
